FAERS Safety Report 4641812-9 (Version None)
Quarter: 2005Q2

REPORT INFORMATION
  Report Type: 
  Country: None (occurrence: None)
  Receive Date: 20050421
  Receipt Date: 20050125
  Transmission Date: 20051028
  Serious: Yes (Hospitalization)
  Sender: FDA-Public Use
  Company Number: US-MERCK-0501USA03953

PATIENT
  Age: 66 Year
  Sex: Female

DRUGS (6)
  1. VIOXX [Suspect]
     Indication: OSTEOARTHRITIS
     Route: 048
     Dates: start: 20031001, end: 20040501
  2. VIOXX [Suspect]
     Route: 048
     Dates: start: 20040501, end: 20040101
  3. DIOVAN [Concomitant]
     Route: 065
  4. PRILOSEC [Concomitant]
     Route: 048
     Dates: start: 20031020
  5. LEXAPRO [Concomitant]
     Route: 048
  6. TRAMADOL HYDROCHLORIDE [Concomitant]
     Route: 048

REACTIONS (5)
  - ADVERSE EVENT [None]
  - CORONARY ARTERY DISEASE [None]
  - DRUG INEFFECTIVE [None]
  - FATIGUE [None]
  - MYOCARDIAL INFARCTION [None]
